FAERS Safety Report 17504989 (Version 2)
Quarter: 2020Q1

REPORT INFORMATION
  Report Type: Spontaneous
  Country: US (occurrence: US)
  Receive Date: 20200306
  Receipt Date: 20200311
  Transmission Date: 20200409
  Serious: No
  Sender: FDA-Public Use
  Company Number: US-BAXTER-2020BAX004798

PATIENT
  Sex: Female

DRUGS (3)
  1. PENICILLIN G POTASSIUM INJECTION, USP [Suspect]
     Active Substance: PENICILLIN G POTASSIUM
     Dosage: GALAXY BAG DILUTED WITH SALINE
     Route: 065
     Dates: start: 202001
  2. PENICILLIN G POTASSIUM INJECTION, USP [Suspect]
     Active Substance: PENICILLIN G POTASSIUM
     Indication: PRODUCT USED FOR UNKNOWN INDICATION
     Route: 065
     Dates: end: 202001
  3. 0.9% SODIUM CHLORIDE INJECTION [Suspect]
     Active Substance: SODIUM CHLORIDE
     Indication: MEDICATION DILUTION
     Route: 065
     Dates: start: 202001

REACTIONS (2)
  - Symptom recurrence [Unknown]
  - Infusion related reaction [Recovered/Resolved]

NARRATIVE: CASE EVENT DATE: 202001
